FAERS Safety Report 9071889 (Version 1)
Quarter: 2013Q1

REPORT INFORMATION
  Report Type: Spontaneous
  Country: US (occurrence: US)
  Receive Date: 20130129
  Receipt Date: 20130129
  Transmission Date: 20140127
  Serious: Yes (Death)
  Sender: FDA-Public Use
  Company Number: PHHY2013US007292

PATIENT
  Age: 39 Year
  Sex: Male

DRUGS (7)
  1. METOPROLOL [Suspect]
  2. METFORMIN [Suspect]
  3. HYDROCHLOROTHIAZIDE [Suspect]
  4. POTASSIUM CHLORIDE [Suspect]
  5. PARACETAMOL SANDOZ [Suspect]
  6. AMLODIPINE [Suspect]
  7. FUROSEMIDE [Suspect]

REACTIONS (1)
  - Completed suicide [Fatal]
